FAERS Safety Report 8574566-4 (Version None)
Quarter: 2012Q3

REPORT INFORMATION
  Report Type: 
  Country: None (occurrence: None)
  Receive Date: 20120806
  Receipt Date: 20120730
  Transmission Date: 20120928
  Serious: Yes (Hospitalization)
  Sender: FDA-Public Use
  Company Number: US-ABBOTT-12P-163-0962071-00

PATIENT
  Sex: Female
  Weight: 77.6 kg

DRUGS (3)
  1. SYNTHROID [Suspect]
     Indication: HYPOTHYROIDISM
     Route: 048
     Dates: start: 20020101
  2. MEDICIATION FOR MIGRAINES [Concomitant]
     Indication: MIGRAINE
  3. METFORMIN HYDROCHLORIDE [Concomitant]
     Indication: HYPERLIPIDAEMIA

REACTIONS (2)
  - CELLULITIS [None]
  - HEADACHE [None]
